FAERS Safety Report 14404107 (Version 2)
Quarter: 2018Q1

REPORT INFORMATION
  Report Type: Report from Study
  Country: DE (occurrence: DE)
  Receive Date: 20180117
  Receipt Date: 20180125
  Transmission Date: 20180509
  Serious: Yes (Other)
  Sender: FDA-Public Use
  Company Number: DE-BAXTER-2017BAX046186

PATIENT
  Age: 72 Year
  Sex: Male
  Weight: 69 kg

DRUGS (59)
  1. VINCRISTINE [Suspect]
     Active Substance: VINCRISTINE
     Dosage: 1 MG, (INFUSION RATE 5 ML/MIN)
     Route: 041
     Dates: start: 20171115, end: 20171115
  2. PREDNISONE. [Suspect]
     Active Substance: PREDNISONE
     Dosage: 500 MG, UNK
     Route: 048
  3. BISOPROLOL [Concomitant]
     Active Substance: BISOPROLOL
     Indication: HYPERTENSION
     Dosage: 5 MG, UNK
     Route: 048
     Dates: start: 20170530
  4. RIXIMYO [Suspect]
     Active Substance: RITUXIMAB
     Dosage: 700 MG, (INFUSION RATE 27.7 ML/MIN)
     Route: 041
     Dates: start: 20171024, end: 20171024
  5. PREDNISONE. [Suspect]
     Active Substance: PREDNISONE
     Dosage: 500 MG, UNK
     Route: 048
  6. KEVATRIL [Concomitant]
     Active Substance: GRANISETRON HYDROCHLORIDE
     Dosage: 1 MG, UNK
     Route: 042
     Dates: start: 20171207, end: 20171207
  7. ALLOPURINOL. [Concomitant]
     Active Substance: ALLOPURINOL
     Indication: PROPHYLAXIS
     Dosage: 300 MG, UNK
     Route: 048
     Dates: start: 20171020
  8. AMPHO MORONAL [Concomitant]
     Active Substance: AMPHOTERICIN B
     Dosage: UNK
     Route: 048
     Dates: start: 20171029, end: 20171105
  9. PARACETAMOL [Concomitant]
     Active Substance: ACETAMINOPHEN
     Dosage: 1 G, UNK
     Route: 048
     Dates: start: 20171024, end: 20171024
  10. PREDNISOLUT [Concomitant]
     Active Substance: PREDNISOLONE
     Dosage: 100 MG, UNK
     Route: 042
     Dates: start: 20171024, end: 20171024
  11. COTRIM [Concomitant]
     Active Substance: SULFAMETHOXAZOLE\TRIMETHOPRIM
     Indication: PROPHYLAXIS
     Dosage: 3 DAYS A WEEK, TID (3)
     Route: 048
     Dates: start: 20171024
  12. ENDOXAN 1G [Suspect]
     Active Substance: CYCLOPHOSPHAMIDE
     Dosage: 1400 MG, (INFUSION RATE 4.17ML/MIN)
     Route: 041
     Dates: start: 20171206, end: 20171206
  13. DOXORUBICIN [Suspect]
     Active Substance: DOXORUBICIN
     Dosage: 95 MG, (INFUSION RATE 8.3 ML/MIN)
     Route: 041
     Dates: start: 20171206, end: 20171206
  14. PREDNISONE. [Suspect]
     Active Substance: PREDNISONE
     Dosage: 500 MG, UNK
     Route: 048
     Dates: start: 20171115, end: 20171115
  15. SEVIKAR [Concomitant]
     Active Substance: AMLODIPINE BESYLATE\OLMESARTAN MEDOXOMIL
     Dosage: UNK
     Route: 048
  16. KEVATRIL [Concomitant]
     Active Substance: GRANISETRON HYDROCHLORIDE
     Dosage: 3 MG, UNK
     Route: 042
     Dates: start: 20171025, end: 20171025
  17. ACICLOVIRUM [Concomitant]
     Dosage: 800 MG, UNK
     Route: 048
  18. ASPIRIN. [Concomitant]
     Active Substance: ASPIRIN
     Indication: HYPERTENSION
     Dosage: 100 MG, UNK
     Route: 048
     Dates: start: 20170530, end: 20171107
  19. MESNA. [Concomitant]
     Active Substance: MESNA
     Indication: PROPHYLAXIS
     Dosage: 1200 MG, UNK
     Route: 042
     Dates: start: 20171115, end: 20171115
  20. RIXIMYO [Suspect]
     Active Substance: RITUXIMAB
     Indication: DIFFUSE LARGE B-CELL LYMPHOMA
     Dosage: 700 MG, (INFUSION RATE 1.7 ML/MIN)
     Route: 041
     Dates: start: 20171114, end: 20171114
  21. KEVATRIL [Concomitant]
     Active Substance: GRANISETRON HYDROCHLORIDE
     Dosage: 3 MG, UNK
     Route: 042
     Dates: start: 20171206, end: 20171206
  22. AMPHO MORONAL [Concomitant]
     Active Substance: AMPHOTERICIN B
     Dosage: UNK
     Route: 048
     Dates: start: 20171205, end: 20171211
  23. ACICLOVIRUM [Concomitant]
     Indication: PROPHYLAXIS
     Dosage: 800 MG, UNK
     Route: 048
     Dates: start: 20171024
  24. SIMVASTATIN. [Concomitant]
     Active Substance: SIMVASTATIN
     Indication: HYPERTENSION
     Dosage: 40 MG, UNK
     Route: 048
     Dates: start: 20170530
  25. PANTOZOL [Concomitant]
     Active Substance: PANTOPRAZOLE SODIUM
     Indication: PROPHYLAXIS
     Dosage: 40 MG, UNK
     Route: 048
     Dates: start: 20171024
  26. ENDOXAN 1G [Suspect]
     Active Substance: CYCLOPHOSPHAMIDE
     Indication: DIFFUSE LARGE B-CELL LYMPHOMA
     Dosage: 1400 MG, (INFUSION RATE 250 ML/MIN)
     Route: 041
     Dates: start: 20171025, end: 20171025
  27. DOXORUBICIN [Suspect]
     Active Substance: DOXORUBICIN
     Dosage: 95 MG, (INFUSION RATE 8.3 ML/MIN)
     Route: 041
     Dates: start: 20171115, end: 20171115
  28. VINCRISTINE [Suspect]
     Active Substance: VINCRISTINE
     Indication: DIFFUSE LARGE B-CELL LYMPHOMA
     Dosage: 1 MG, (INFUSION RATE 1 ML/MIN)
     Route: 041
     Dates: start: 20171025, end: 20171025
  29. PREDNISONE. [Suspect]
     Active Substance: PREDNISONE
     Dosage: 500 MG, UNK
     Route: 048
  30. SEVIKAR [Concomitant]
     Active Substance: AMLODIPINE BESYLATE\OLMESARTAN MEDOXOMIL
     Indication: HYPERTENSION
     Dosage: UNK
     Route: 048
     Dates: start: 20170530
  31. RANITIDIN [Concomitant]
     Active Substance: RANITIDINE HYDROCHLORIDE
     Indication: PROPHYLAXIS
     Dosage: UNK
     Route: 042
     Dates: start: 20171114, end: 20171114
  32. RANITIDIN [Concomitant]
     Active Substance: RANITIDINE HYDROCHLORIDE
     Dosage: UNK
     Route: 042
     Dates: start: 20171205, end: 20171205
  33. KEVATRIL [Concomitant]
     Active Substance: GRANISETRON HYDROCHLORIDE
     Indication: PROPHYLAXIS
     Dosage: 1 MG, UNK
     Route: 042
     Dates: start: 20171116, end: 20171116
  34. KEVATRIL [Concomitant]
     Active Substance: GRANISETRON HYDROCHLORIDE
     Dosage: 3 MG, UNK
     Route: 042
     Dates: start: 20171115, end: 20171115
  35. AMPHO MORONAL [Concomitant]
     Active Substance: AMPHOTERICIN B
     Indication: PROPHYLAXIS
     Dosage: UNK
     Route: 048
     Dates: start: 20171114, end: 20171120
  36. SIMVASTATIN. [Concomitant]
     Active Substance: SIMVASTATIN
     Dosage: 40 MG, UNK
     Route: 048
  37. PANTOZOL [Concomitant]
     Active Substance: PANTOPRAZOLE SODIUM
     Dosage: 40 MG, UNK
     Route: 048
  38. VINCRISTINE [Suspect]
     Active Substance: VINCRISTINE
     Dosage: 1 MG, (INFUSION RATE 1 ML/MIN)
     Route: 041
     Dates: start: 20171206, end: 20171206
  39. BISOPROLOL [Concomitant]
     Active Substance: BISOPROLOL
     Dosage: 5 MG, UNK
     Route: 048
  40. TAVEGIL [Concomitant]
     Active Substance: CLEMASTINE FUMARATE
     Dosage: UNK
     Route: 042
     Dates: start: 20171024, end: 20171024
  41. FRESUBIN [Concomitant]
     Active Substance: AMINO ACIDS\DEXTROSE\ELECTROLYTES NOS\SOYBEAN OIL\VITAMINS
     Indication: PRODUCT USED FOR UNKNOWN INDICATION
     Dosage: 2 KCAL, UNK ()
     Route: 048
  42. ENDOXAN 1G [Suspect]
     Active Substance: CYCLOPHOSPHAMIDE
     Dosage: 1400 MG, (INFUSION RATE 4.17 ML/MIN)
     Route: 041
     Dates: start: 20171115, end: 20171115
  43. PREDNISONE. [Suspect]
     Active Substance: PREDNISONE
     Indication: DIFFUSE LARGE B-CELL LYMPHOMA
     Dosage: 500 MG, UNK
     Route: 048
     Dates: start: 20171025, end: 20171025
  44. RANITIDIN [Concomitant]
     Active Substance: RANITIDINE HYDROCHLORIDE
     Dosage: UNK
     Route: 042
     Dates: start: 20171024, end: 20171024
  45. KEVATRIL [Concomitant]
     Active Substance: GRANISETRON HYDROCHLORIDE
     Dosage: 3 MG, UNK
     Route: 042
     Dates: start: 20171026, end: 20171026
  46. TAVEGIL [Concomitant]
     Active Substance: CLEMASTINE FUMARATE
     Indication: PROPHYLAXIS
     Dosage: UNK
     Route: 042
     Dates: start: 20171114, end: 20171114
  47. PARACETAMOL [Concomitant]
     Active Substance: ACETAMINOPHEN
     Dosage: 1 G, UNK
     Route: 048
     Dates: start: 20171205, end: 20171205
  48. PREDNISOLUT [Concomitant]
     Active Substance: PREDNISOLONE
     Indication: PROPHYLAXIS
     Dosage: 100 MG, UNK
     Route: 042
     Dates: start: 20171114, end: 20171114
  49. PREDNISOLUT [Concomitant]
     Active Substance: PREDNISOLONE
     Dosage: 100 MG, UNK
     Route: 048
     Dates: start: 20171020, end: 20171024
  50. MESNA. [Concomitant]
     Active Substance: MESNA
     Dosage: 1200 MG, UNK
     Route: 042
     Dates: start: 20171025, end: 20171025
  51. MESNA. [Concomitant]
     Active Substance: MESNA
     Dosage: 1200 MG, UNK
     Route: 042
     Dates: start: 20171206, end: 20171206
  52. DEKRISTOL [Concomitant]
     Active Substance: CHOLECALCIFEROL
     Indication: PRODUCT USED FOR UNKNOWN INDICATION
     Dosage: 20000 IE, QW (1)
     Route: 065
     Dates: start: 20171124
  53. DOXORUBICIN [Suspect]
     Active Substance: DOXORUBICIN
     Indication: DIFFUSE LARGE B-CELL LYMPHOMA
     Dosage: 95 MG, (INFUSION RATE 8.3 ML/MIN)
     Route: 041
     Dates: start: 20171025, end: 20171025
  54. RIXIMYO [Suspect]
     Active Substance: RITUXIMAB
     Dosage: 700 MG, (INFUSION RATE 2.25 ML/MIN)
     Route: 041
     Dates: start: 20171205, end: 20171205
  55. VINCRISTINE [Suspect]
     Active Substance: VINCRISTINE
     Route: 065
     Dates: start: 20171020, end: 20171020
  56. KEVATRIL [Concomitant]
     Active Substance: GRANISETRON HYDROCHLORIDE
     Route: 065
     Dates: start: 20171020, end: 20171020
  57. ALLOPURINOL. [Concomitant]
     Active Substance: ALLOPURINOL
     Dosage: 300 MG, UNK
     Route: 048
  58. TAVEGIL [Concomitant]
     Active Substance: CLEMASTINE FUMARATE
     Dosage: UNK
     Route: 042
     Dates: start: 20171205, end: 20171205
  59. PARACETAMOL [Concomitant]
     Active Substance: ACETAMINOPHEN
     Indication: PROPHYLAXIS
     Dosage: 1 G, UNK
     Route: 048
     Dates: start: 20171114, end: 20171114

REACTIONS (11)
  - Insomnia [Unknown]
  - Pulmonary embolism [Not Recovered/Not Resolved]
  - Red blood cell count decreased [Unknown]
  - Asthenia [Unknown]
  - Haemoglobin decreased [Unknown]
  - Irritability [Unknown]
  - Fatigue [Unknown]
  - Depression [Unknown]
  - Decreased appetite [Unknown]
  - Anxiety [Unknown]
  - Neutrophil count increased [Recovered/Resolved]

NARRATIVE: CASE EVENT DATE: 20171024
